FAERS Safety Report 13157524 (Version 1)
Quarter: 2017Q1

REPORT INFORMATION
  Report Type: Spontaneous
  Country: US (occurrence: US)
  Receive Date: 20170127
  Receipt Date: 20170127
  Transmission Date: 20170428
  Serious: Yes (Hospitalization)
  Sender: FDA-Public Use
  Company Number: US-ASTRAZENECA-2017SE07983

PATIENT
  Sex: Female

DRUGS (2)
  1. SYMBICORT [Suspect]
     Active Substance: BUDESONIDE\FORMOTEROL FUMARATE DIHYDRATE
     Dosage: TWO TIMES A DAY, UNKNOWN DOSE
     Route: 055
  2. VENTOLIN [Concomitant]
     Active Substance: ALBUTEROL SULFATE

REACTIONS (4)
  - Dyspnoea [Recovered/Resolved]
  - Bilevel positive airway pressure [Unknown]
  - Fear [Unknown]
  - Weight increased [Unknown]
